FAERS Safety Report 13711963 (Version 1)
Quarter: 2017Q3

REPORT INFORMATION
  Report Type: Spontaneous
  Country: US (occurrence: US)
  Receive Date: 20170703
  Receipt Date: 20170703
  Transmission Date: 20171127
  Serious: No
  Sender: FDA-Public Use
  Company Number: US-JNJFOC-20170402626

PATIENT
  Sex: Female
  Weight: 59.88 kg

DRUGS (1)
  1. TOPAMAX [Suspect]
     Active Substance: TOPIRAMATE
     Indication: EPILEPSY
     Route: 048
     Dates: start: 2007

REACTIONS (7)
  - Anaemia [Recovered/Resolved]
  - Temperature intolerance [Unknown]
  - Hyperphagia [Unknown]
  - Gastrointestinal infection [Unknown]
  - Paraesthesia [Recovered/Resolved]
  - Gastrointestinal disorder [Not Recovered/Not Resolved]
  - Chills [Not Recovered/Not Resolved]

NARRATIVE: CASE EVENT DATE: 2007
